FAERS Safety Report 19036497 (Version 2)
Quarter: 2021Q1

REPORT INFORMATION
  Report Type: Report from Study
  Country: RO (occurrence: RO)
  Receive Date: 20210322
  Receipt Date: 20210324
  Transmission Date: 20210420
  Serious: Yes (Death, Life-Threatening, Other)
  Sender: FDA-Public Use
  Company Number: RO-ASTRAZENECA-2021A087365

PATIENT
  Age: 74 Year
  Sex: Male

DRUGS (1)
  1. TAGRISSO [Suspect]
     Active Substance: OSIMERTINIB
     Indication: LUNG NEOPLASM MALIGNANT
     Route: 048
     Dates: start: 202005, end: 20210206

REACTIONS (7)
  - Coma [Unknown]
  - Pain [Unknown]
  - Death [Fatal]
  - Metastases to central nervous system [Unknown]
  - Metastases to bone [Unknown]
  - Malignant neoplasm progression [Unknown]
  - Metastases to liver [Unknown]
